FAERS Safety Report 7435997-9 (Version None)
Quarter: 2011Q2

REPORT INFORMATION
  Report Type: 
  Country: None (occurrence: None)
  Receive Date: 20110425
  Receipt Date: 20110420
  Transmission Date: 20111010
  Serious: Yes (Other)
  Sender: FDA-Public Use
  Company Number: US-PFIZER INC-2011086846

PATIENT
  Sex: Female

DRUGS (3)
  1. HYTRIN [Concomitant]
     Indication: HYPERTENSION
     Dosage: 1 MG, 2X/DAY
     Route: 048
     Dates: start: 20000101
  2. ADVIL LIQUI-GELS [Suspect]
     Indication: ARTHRITIS
     Dosage: UNK
     Route: 048
  3. VALSARTAN [Concomitant]
     Indication: HYPERTENSION
     Dosage: 80 MG, 1X/DAY
     Route: 048
     Dates: start: 20100101

REACTIONS (1)
  - HYPERTENSION [None]
